FAERS Safety Report 8156604-6 (Version None)
Quarter: 2012Q1

REPORT INFORMATION
  Report Type: 
  Country: None (occurrence: None)
  Receive Date: 20120216
  Receipt Date: 20120213
  Transmission Date: 20120608
  Serious: Yes (Death)
  Sender: FDA-Public Use
  Company Number: ADR-2012-00325

PATIENT
  Sex: Female

DRUGS (1)
  1. BACLOFEN INTRATHEDCAL (BACLOFEN INJECTION) 500 MCG/ML [Suspect]
     Indication: MUSCLE SPASTICITY
     Dosage: 99 MCG/DAY

REACTIONS (3)
  - INCISION SITE COMPLICATION [None]
  - AMYOTROPHIC LATERAL SCLEROSIS [None]
  - SEROMA [None]
